FAERS Safety Report 9431226 (Version 1)
Quarter: 2013Q3

REPORT INFORMATION
  Report Type: Spontaneous
  Country: US (occurrence: US)
  Receive Date: 20130730
  Receipt Date: 20130730
  Transmission Date: 20140515
  Serious: Yes (Life-Threatening, Other)
  Sender: FDA-Public Use
  Company Number: US-ROXANE LABORATORIES, INC.-2013-RO-01229RO

PATIENT
  Age: 17 Year
  Sex: Female

DRUGS (3)
  1. CYCLOPHOSPHAMIDE TABLETS USP [Suspect]
     Indication: ALLERGIC GRANULOMATOUS ANGIITIS
     Route: 048
  2. AZATHIOPRINE [Suspect]
     Indication: ALLERGIC GRANULOMATOUS ANGIITIS
  3. PREDNISONE [Suspect]
     Indication: ALLERGIC GRANULOMATOUS ANGIITIS
     Dosage: 75 MG
     Route: 048

REACTIONS (9)
  - Cardiac failure [Unknown]
  - Pancytopenia [Unknown]
  - Osteoporosis [Unknown]
  - Cataract [Unknown]
  - Spinal fracture [Unknown]
  - Diabetes mellitus [Unknown]
  - Myopathy [Unknown]
  - Candida infection [Unknown]
  - Cerebral infarction [Unknown]
